FAERS Safety Report 20340283 (Version 1)
Quarter: 2022Q1

REPORT INFORMATION
  Report Type: Spontaneous
  Country: CA (occurrence: CA)
  Receive Date: 20220117
  Receipt Date: 20220117
  Transmission Date: 20220423
  Serious: Yes (Other)
  Sender: FDA-Public Use
  Company Number: CA-BAXTER-2022BAX000460

PATIENT
  Age: 14 Year
  Sex: Male

DRUGS (15)
  1. CYCLOPHOSPHAMIDE [Suspect]
     Active Substance: CYCLOPHOSPHAMIDE
     Indication: Polyarteritis nodosa
     Dosage: DOSAGE FORM: NOT SPECIFIED
     Route: 065
  2. AMLODIPINE [Suspect]
     Active Substance: AMLODIPINE BESYLATE
     Indication: Product used for unknown indication
     Route: 065
  3. AZATHIOPRINE [Suspect]
     Active Substance: AZATHIOPRINE
     Indication: Polyarteritis nodosa
     Dosage: DOSAGE FORM: NOT SPECIFIED
     Route: 065
  4. ENALAPRIL [Suspect]
     Active Substance: ENALAPRIL
     Indication: Product used for unknown indication
     Dosage: DOSAGE FORM: NOT SPECIFIED
     Route: 065
  5. FERROUS FUMARATE [Suspect]
     Active Substance: FERROUS FUMARATE
     Indication: Product used for unknown indication
     Dosage: DOSAGE FORM: NOT SPECIFIED
     Route: 065
  6. INFLIXIMAB [Suspect]
     Active Substance: INFLIXIMAB
     Indication: Polyarteritis nodosa
     Dosage: DOSAGE FORM: NOT SPECIFIED
     Route: 065
  7. INSULIN NOS [Suspect]
     Active Substance: INSULIN NOS
     Indication: Product used for unknown indication
     Route: 065
  8. METFORMIN [Suspect]
     Active Substance: METFORMIN HYDROCHLORIDE
     Indication: Product used for unknown indication
     Route: 065
  9. METHOTREXATE [Suspect]
     Active Substance: METHOTREXATE
     Indication: Polyarteritis nodosa
     Dosage: DOSAGE FORM: NOT SPECIFIED
     Route: 065
  10. NUTROPIN [Suspect]
     Active Substance: SOMATROPIN
     Indication: Product used for unknown indication
     Route: 058
  11. PREDNISONE [Suspect]
     Active Substance: PREDNISONE
     Indication: Product used for unknown indication
     Dosage: DOSAGE FORM: NOT SPECIFIED
     Route: 065
  12. RANITIDINE [Suspect]
     Active Substance: RANITIDINE
     Indication: Product used for unknown indication
     Route: 065
  13. SOMATREM [Suspect]
     Active Substance: SOMATREM
     Indication: Product used for unknown indication
     Route: 065
  14. SULFAMETHOXAZOLE [Suspect]
     Active Substance: SULFAMETHOXAZOLE
     Indication: Product used for unknown indication
     Route: 065
  15. TESTOSTERONE [Suspect]
     Active Substance: TESTOSTERONE
     Indication: Product used for unknown indication
     Dosage: DOSAGE FORM: NOT SPECIFIED
     Route: 065

REACTIONS (5)
  - Off label use [Unknown]
  - Product use in unapproved indication [Unknown]
  - Lymphoproliferative disorder [Unknown]
  - Clear cell renal cell carcinoma [Unknown]
  - Renal cell carcinoma [Unknown]
